FAERS Safety Report 22770432 (Version 3)
Quarter: 2023Q4

REPORT INFORMATION
  Report Type: Report from Study
  Country: US (occurrence: US)
  Receive Date: 20230801
  Receipt Date: 20231102
  Transmission Date: 20240110
  Serious: Yes (Other)
  Sender: FDA-Public Use
  Company Number: US-UCBSA-2023038173

PATIENT
  Age: 22 Year
  Sex: Male

DRUGS (4)
  1. MIDAZOLAM [Suspect]
     Active Substance: MIDAZOLAM
     Indication: Seizure
     Dosage: 5 MILLIGRAM AS NEEDED
  2. MIDAZOLAM [Suspect]
     Active Substance: MIDAZOLAM
     Dosage: 5 MILLIGRAM, REPEAT AFTER 10MIN IF NEED
     Route: 045
  3. KEPPRA [Concomitant]
     Active Substance: LEVETIRACETAM
     Indication: Product used for unknown indication
     Dosage: UNK
  4. AZITHROMYCIN [Concomitant]
     Active Substance: AZITHROMYCIN
     Indication: Product used for unknown indication
     Dosage: UNK

REACTIONS (4)
  - Seizure [Unknown]
  - COVID-19 [Recovered/Resolved]
  - Product use issue [Unknown]
  - Therapy interrupted [Unknown]

NARRATIVE: CASE EVENT DATE: 20230726
